FAERS Safety Report 9523752 (Version 3)
Quarter: 2014Q1

REPORT INFORMATION
  Report Type: Report from Study
  Country: PR (occurrence: PR)
  Receive Date: 20130915
  Receipt Date: 20140123
  Transmission Date: 20141002
  Serious: Yes (Death, Life-Threatening, Hospitalization, Disabling, Other)
  Sender: FDA-Public Use
  Company Number: PR-ABBVIE-13P-131-1147696-00

PATIENT
  Age: 78 Year
  Sex: Male
  Weight: 74.91 kg

DRUGS (13)
  1. HUMIRA [Suspect]
     Indication: RHEUMATOID ARTHRITIS
     Route: 058
     Dates: end: 201306
  2. METOPROLOL [Concomitant]
     Indication: HYPERTENSION
  3. ISOSORBIDE [Concomitant]
     Indication: HYPERTENSION
  4. LISINOPRIL [Concomitant]
     Indication: HYPERTENSION
  5. NORVASC [Concomitant]
     Indication: HYPERTENSION
  6. NOVOLIN N [Concomitant]
     Indication: DIABETES MELLITUS
     Route: 058
  7. NOVOLIN R [Concomitant]
     Indication: DIABETES MELLITUS
     Route: 058
  8. MIX OF CITRIC ACID AND SULFA [Concomitant]
     Indication: RENAL DYSPLASIA
  9. TRAMADOL [Concomitant]
     Indication: PAIN IN EXTREMITY
  10. TRAMADOL [Concomitant]
     Indication: ARTHRITIS
  11. LASIX [Concomitant]
     Indication: PRODUCT USED FOR UNKNOWN INDICATION
     Route: 048
  12. PROCRIT [Concomitant]
     Indication: ANAEMIA
     Route: 030
  13. MULTIVITAMINS [Concomitant]
     Indication: VITAMIN SUPPLEMENTATION

REACTIONS (7)
  - Liver disorder [Fatal]
  - Hip fracture [Not Recovered/Not Resolved]
  - Cardiac enzymes increased [Not Recovered/Not Resolved]
  - Renal failure chronic [Not Recovered/Not Resolved]
  - Ischaemic cardiomyopathy [Fatal]
  - Anaemia [Fatal]
  - Fall [Unknown]
